FAERS Safety Report 7049317-5 (Version None)
Quarter: 2010Q4

REPORT INFORMATION
  Report Type: 
  Country: None (occurrence: None)
  Receive Date: 20101018
  Receipt Date: 20091103
  Transmission Date: 20110411
  Serious: No
  Sender: FDA-Public Use
  Company Number: A0814766A

PATIENT
  Age: 39 Year
  Sex: Female

DRUGS (2)
  1. CEFUROXIME AXETIL [Suspect]
     Dosage: 500MG TWICE PER DAY
     Route: 048
     Dates: start: 20091103
  2. MUCINEX [Concomitant]

REACTIONS (2)
  - OROPHARYNGEAL DISCOMFORT [None]
  - RETCHING [None]
